FAERS Safety Report 20058168 (Version 1)
Quarter: 2021Q4

REPORT INFORMATION
  Report Type: Spontaneous
  Country: CN (occurrence: CN)
  Receive Date: 20211111
  Receipt Date: 20211111
  Transmission Date: 20220303
  Serious: Yes (Other)
  Sender: FDA-Public Use
  Company Number: CN-PFIZER INC-202101484199

PATIENT
  Age: 52 Year
  Sex: Female
  Weight: 81 kg

DRUGS (12)
  1. PIPERACILLIN SODIUM\TAZOBACTAM SODIUM [Suspect]
     Active Substance: PIPERACILLIN SODIUM\TAZOBACTAM SODIUM
     Indication: Uterine haemorrhage
     Dosage: 4.5 G, 4X/DAY
     Route: 041
     Dates: start: 20211021, end: 20211029
  2. PIPERACILLIN SODIUM\TAZOBACTAM SODIUM [Suspect]
     Active Substance: PIPERACILLIN SODIUM\TAZOBACTAM SODIUM
     Indication: Adenomyosis
  3. PIPERACILLIN SODIUM\TAZOBACTAM SODIUM [Suspect]
     Active Substance: PIPERACILLIN SODIUM\TAZOBACTAM SODIUM
     Indication: Uterine leiomyoma
  4. PIPERACILLIN SODIUM\TAZOBACTAM SODIUM [Suspect]
     Active Substance: PIPERACILLIN SODIUM\TAZOBACTAM SODIUM
     Indication: Hydrosalpinx
  5. METRONIDAZOLE\SODIUM CHLORIDE [Suspect]
     Active Substance: METRONIDAZOLE\SODIUM CHLORIDE
     Indication: Uterine haemorrhage
     Dosage: 500 MG, 2X/DAY
     Route: 041
     Dates: start: 20211020, end: 20211026
  6. METRONIDAZOLE\SODIUM CHLORIDE [Suspect]
     Active Substance: METRONIDAZOLE\SODIUM CHLORIDE
     Indication: Adenomyosis
  7. METRONIDAZOLE\SODIUM CHLORIDE [Suspect]
     Active Substance: METRONIDAZOLE\SODIUM CHLORIDE
     Indication: Uterine leiomyoma
  8. METRONIDAZOLE\SODIUM CHLORIDE [Suspect]
     Active Substance: METRONIDAZOLE\SODIUM CHLORIDE
     Indication: Hydrosalpinx
  9. SODIUM CHLORIDE [Concomitant]
     Active Substance: SODIUM CHLORIDE
     Indication: Uterine haemorrhage
     Dosage: 250 ML, 4X/DAY
     Route: 041
     Dates: start: 20211021, end: 20211029
  10. SODIUM CHLORIDE [Concomitant]
     Active Substance: SODIUM CHLORIDE
     Indication: Adenomyosis
  11. SODIUM CHLORIDE [Concomitant]
     Active Substance: SODIUM CHLORIDE
     Indication: Uterine leiomyoma
  12. SODIUM CHLORIDE [Concomitant]
     Active Substance: SODIUM CHLORIDE
     Indication: Hydrosalpinx

REACTIONS (4)
  - Diarrhoea [Recovering/Resolving]
  - Faeces discoloured [Recovering/Resolving]
  - Abdominal distension [Recovering/Resolving]
  - Off label use [Unknown]

NARRATIVE: CASE EVENT DATE: 20211021
